FAERS Safety Report 4896286-X (Version None)
Quarter: 2006Q1

REPORT INFORMATION
  Report Type: 
  Country: None (occurrence: None)
  Receive Date: 20060126
  Receipt Date: 20060111
  Transmission Date: 20060701
  Serious: Yes (Death, Life-Threatening)
  Sender: FDA-Public Use
  Company Number: 219146

PATIENT
  Age: 66 Year
  Sex: Male
  Weight: 68.5 kg

DRUGS (11)
  1. ERLOTINIB(ERLOTINIB) TABLET [Suspect]
     Indication: NON-SMALL CELL LUNG CANCER
     Dosage: 150 MG, QD, ORAL
     Route: 048
     Dates: start: 20050914, end: 20051001
  2. AVASTIN [Suspect]
     Indication: NON-SMALL CELL LUNG CANCER
     Dosage: 150 MG, QD, ORAL
     Route: 048
     Dates: start: 20050914, end: 20051005
  3. ASPIRIN [Concomitant]
  4. LOVENOX [Concomitant]
  5. ADVAIR DISKUS 100/50 [Concomitant]
  6. ALBUTEROL INHALER (ALBUTEROL/ABUTEROL SULFATE) [Concomitant]
  7. MS CONTIN [Concomitant]
  8. PERCOCET (ACETAMINOPHEN, OXYCODONE HYDROCHORIDE) [Concomitant]
  9. SIMETHICONE (SIMETHICONE) [Concomitant]
  10. MIRALAX [Concomitant]
  11. ASPIRIN [Concomitant]

REACTIONS (26)
  - ANAEMIA [None]
  - ANOREXIA [None]
  - ASTHENIA [None]
  - BACTERAEMIA [None]
  - BLOOD CALCIUM DECREASED [None]
  - BLOOD SODIUM DECREASED [None]
  - BREATH SOUNDS ABNORMAL [None]
  - CARDIO-RESPIRATORY ARREST [None]
  - CHEST DISCOMFORT [None]
  - DEHYDRATION [None]
  - DYSPNOEA EXERTIONAL [None]
  - DYSSTASIA [None]
  - HAEMATOCRIT DECREASED [None]
  - HAEMOGLOBIN DECREASED [None]
  - HAEMOPTYSIS [None]
  - MALIGNANT NEOPLASM PROGRESSION [None]
  - NAUSEA [None]
  - NON-SMALL CELL LUNG CANCER [None]
  - ORAL INTAKE REDUCED [None]
  - PHARYNGOLARYNGEAL PAIN [None]
  - PLATELET COUNT INCREASED [None]
  - RASH [None]
  - STAPHYLOCOCCAL INFECTION [None]
  - TACHYCARDIA [None]
  - VOMITING [None]
  - WHITE BLOOD CELL COUNT INCREASED [None]
